FAERS Safety Report 9890567 (Version 2)
Quarter: 2014Q1

REPORT INFORMATION
  Report Type: Report from Study
  Country: AU (occurrence: AU)
  Receive Date: 20140212
  Receipt Date: 20140212
  Transmission Date: 20141002
  Serious: Yes (Hospitalization)
  Sender: FDA-Public Use
  Company Number: AU-BAYER-2014-015793

PATIENT
  Age: 40 Year
  Sex: Male

DRUGS (1)
  1. BLINDED ACETYLSALICYLIC ACID({=100 MG) [Suspect]
     Route: 048

REACTIONS (6)
  - Haematuria [Recovered/Resolved]
  - Lethargy [Recovered/Resolved]
  - Pallor [Recovered/Resolved]
  - Renal colic [Recovered/Resolved]
  - Renal failure acute [Recovered/Resolved]
  - Ureteric obstruction [Recovered/Resolved]
